FAERS Safety Report 21581685 (Version 1)
Quarter: 2022Q4

REPORT INFORMATION
  Report Type: Spontaneous
  Country: NL (occurrence: NL)
  Receive Date: 20221111
  Receipt Date: 20221111
  Transmission Date: 20230112
  Serious: Yes (Hospitalization, Other)
  Sender: FDA-Public Use
  Company Number: NL-ALKEM LABORATORIES LIMITED-NL-ALKEM-2022-12519

PATIENT
  Age: 19 Year
  Sex: Female

DRUGS (1)
  1. COLCHICINE [Suspect]
     Active Substance: COLCHICINE
     Indication: Suicide attempt
     Dosage: INGESTION OF AN ESTIMATED 35 MG OF COLCHICINE (0.64 MG PER KILOGRAM BODYWEIGHT)
     Route: 048

REACTIONS (11)
  - Alopecia [Recovered/Resolved]
  - Acute respiratory distress syndrome [Recovered/Resolved]
  - Ileus [Recovered/Resolved]
  - Multiple organ dysfunction syndrome [Recovered/Resolved]
  - Toxicity to various agents [Recovered/Resolved]
  - Thrombocytopenia [Recovered/Resolved]
  - Overdose [Unknown]
  - Hepatic failure [Recovered/Resolved]
  - Acute kidney injury [Recovered/Resolved]
  - Leukocytosis [Recovered/Resolved]
  - Myelosuppression [Recovered/Resolved]
